FAERS Safety Report 10381258 (Version 3)
Quarter: 2014Q3

REPORT INFORMATION
  Report Type: Spontaneous
  Country: BR (occurrence: None)
  Receive Date: 20140811
  Receipt Date: 20140825
  Transmission Date: 20150326
  Serious: Yes (Other)
  Sender: FDA-Public Use
  Company Number: AUR-APL-2014-08416

PATIENT
  Age: 65 Year
  Sex: Female

DRUGS (6)
  1. ATENOLOL 50 MG [Suspect]
     Active Substance: ATENOLOL
     Indication: HYPERTENSION
     Route: 048
     Dates: start: 2004
  2. METFORMIN (METFORMIN) UNKNOWN, UNKNOWN [Suspect]
     Active Substance: METFORMIN HYDROCHLORIDE
     Indication: TYPE 2 DIABETES MELLITUS
     Route: 048
     Dates: start: 2004
  3. ONGLYZA [Suspect]
     Active Substance: SAXAGLIPTIN HYDROCHLORIDE
     Indication: TYPE 2 DIABETES MELLITUS
     Route: 048
     Dates: start: 201404
  4. LOSARTAN POTASSIUM. [Concomitant]
     Active Substance: LOSARTAN POTASSIUM
  5. INSULIN [Concomitant]
     Active Substance: INSULIN NOS
  6. GLIMEPIRIDE. [Concomitant]
     Active Substance: GLIMEPIRIDE

REACTIONS (5)
  - Blood pressure increased [None]
  - Swelling [None]
  - Off label use [None]
  - Constipation [None]
  - Drug ineffective [None]

NARRATIVE: CASE EVENT DATE: 201404
